FAERS Safety Report 14974041 (Version 1)
Quarter: 2018Q2

REPORT INFORMATION
  Report Type: Spontaneous
  Country: DE (occurrence: DE)
  Receive Date: 20180605
  Receipt Date: 20180605
  Transmission Date: 20180711
  Serious: Yes (Hospitalization)
  Sender: FDA-Public Use
  Company Number: DE-PFIZER INC-2018221250

PATIENT
  Age: 70 Year
  Sex: Female
  Weight: 75 kg

DRUGS (9)
  1. ACETYLSALICYLIC ACID [Concomitant]
     Active Substance: ASPIRIN
     Dosage: 100 MG, 1X/DAY
  2. SIMVASTATIN. [Concomitant]
     Active Substance: SIMVASTATIN
     Dosage: 20 MG, 1X/DAY
  3. ZOSTEX [Suspect]
     Active Substance: BRIVUDINE
     Indication: HERPES ZOSTER
     Dosage: 125 MG, 1X/DAY
     Route: 048
     Dates: start: 20171117, end: 20171123
  4. LEVOTHYROXINE SODIUM. [Concomitant]
     Active Substance: LEVOTHYROXINE SODIUM
     Dosage: 100 UG, 1X/DAY
  5. ATORVASTATIN CALCIUM. [Suspect]
     Active Substance: ATORVASTATIN CALCIUM
     Dates: start: 20171206
  6. TORASEMIDE [Concomitant]
     Active Substance: TORSEMIDE
     Dosage: 5 MG, 1X/DAY
  7. CANDESARTAN CILEXETIL. [Concomitant]
     Active Substance: CANDESARTAN CILEXETIL
     Dosage: 32 MG, DAILY (HALF A TABLETT IN THE MORNING AND HALF A TABLET IN THE EVENING)
  8. METOPROLOL TARTRATE. [Concomitant]
     Active Substance: METOPROLOL TARTRATE
     Dosage: 200 MG/25 MG (100 MG/12.5 MG, 1 IN 1 D)
  9. DOXEPIN [Concomitant]
     Active Substance: DOXEPIN
     Dosage: 10 MG, DAILY (HALF IN THE MORNING AND HALF IN THE EVENING)

REACTIONS (3)
  - Asthenia [Recovered/Resolved]
  - Contusion [Recovered/Resolved]
  - Myalgia [Recovered/Resolved]

NARRATIVE: CASE EVENT DATE: 20171207
